FAERS Safety Report 4992522-X (Version None)
Quarter: 2006Q1

REPORT INFORMATION
  Report Type: 
  Country: None (occurrence: None)
  Receive Date: 20060314
  Receipt Date: 20051228
  Transmission Date: 20060701
  Serious: Yes (Hospitalization)
  Sender: FDA-Public Use
  Company Number: 2005-02652

PATIENT
  Age: 67 Year
  Sex: Male

DRUGS (11)
  1. VELCADE [Suspect]
     Indication: MULTIPLE MYELOMA
     Dosage: INTRAVENOUS
     Route: 042
     Dates: end: 20050811
  2. GLIPIZIDE [Concomitant]
  3. DIGOXIN [Concomitant]
  4. AVANDIA [Concomitant]
  5. NEXIUM [Concomitant]
  6. LISINOPRIL [Concomitant]
  7. ASPIRIN [Concomitant]
  8. METOPROLOL SUCCINATE [Concomitant]
  9. INSULIN [Concomitant]
  10. COUMADIN [Concomitant]
  11. LASIX [Concomitant]

REACTIONS (7)
  - CARDIOACTIVE DRUG LEVEL INCREASED [None]
  - DECREASED ACTIVITY [None]
  - DIARRHOEA [None]
  - NAUSEA [None]
  - ORTHOSTATIC HYPOTENSION [None]
  - SYNCOPE [None]
  - VOMITING [None]
